FAERS Safety Report 8066160-9 (Version None)
Quarter: 2012Q1

REPORT INFORMATION
  Report Type: 
  Country: None (occurrence: None)
  Receive Date: 20120124
  Receipt Date: 20111101
  Transmission Date: 20120608
  Serious: No
  Sender: FDA-Public Use
  Company Number: US-BRISTOL-MYERS SQUIBB COMPANY-16121139

PATIENT
  Age: 11 Year
  Sex: Male

DRUGS (1)
  1. ABILIFY [Suspect]
     Dosage: 1 DF = 1-2ML:AT BEDTIME,IN SEP2011 NEW 120 ML BOTTLE
     Route: 048
     Dates: start: 20110719

REACTIONS (1)
  - DRUG INEFFECTIVE [None]
